FAERS Safety Report 18790615 (Version 3)
Quarter: 2021Q3

REPORT INFORMATION
  Report Type: Spontaneous
  Country: US (occurrence: US)
  Receive Date: 20210126
  Receipt Date: 20210818
  Transmission Date: 20211014
  Serious: No
  Sender: FDA-Public Use
  Company Number: US-BIOGEN-2020BI00948848

PATIENT
  Sex: Male

DRUGS (2)
  1. VUMERITY [Suspect]
     Active Substance: DIROXIMEL FUMARATE
     Indication: MULTIPLE SCLEROSIS
     Route: 065
     Dates: start: 20201112
  2. VUMERITY [Suspect]
     Active Substance: DIROXIMEL FUMARATE
     Route: 065

REACTIONS (9)
  - Haematochezia [Unknown]
  - Hypotonia [Not Recovered/Not Resolved]
  - Stress [Unknown]
  - Muscle spasms [Unknown]
  - Anxiety [Recovered/Resolved]
  - Hypoaesthesia [Unknown]
  - Fall [Recovered/Resolved]
  - COVID-19 [Recovered/Resolved]
  - Nervousness [Unknown]
